FAERS Safety Report 8498056-2 (Version None)
Quarter: 2012Q3

REPORT INFORMATION
  Report Type: 
  Country: None (occurrence: None)
  Receive Date: 20120709
  Receipt Date: 20120618
  Transmission Date: 20120928
  Serious: No
  Sender: FDA-Public Use
  Company Number: US-AMGEN-USASP2012037798

PATIENT
  Age: 44 Year
  Sex: Male

DRUGS (8)
  1. FOLIC ACID [Concomitant]
     Dosage: UNK
  2. TRAMADOL HCL [Concomitant]
     Dosage: UNK
  3. OYSTER SHELL WITH VITAMIN D [Concomitant]
     Dosage: UNK
  4. PREDNISONE [Concomitant]
     Dosage: UNK
  5. METHOTREXATE [Concomitant]
     Dosage: UNK
  6. ENBREL [Suspect]
     Indication: RHEUMATOID ARTHRITIS
     Dosage: 50 MG, QWK
     Dates: start: 20120101
  7. DICLOFENAC SODIUM [Concomitant]
     Dosage: UNK
  8. SULFASALAZINE [Concomitant]
     Dosage: UNK

REACTIONS (2)
  - CONTUSION [None]
  - HEADACHE [None]
